FAERS Safety Report 10479644 (Version 1)
Quarter: 2014Q3

REPORT INFORMATION
  Report Type: Spontaneous
  Country: US (occurrence: US)
  Receive Date: 20140927
  Receipt Date: 20140927
  Transmission Date: 20150326
  Serious: No
  Sender: FDA-Public Use
  Company Number: US-LUNDBECK-DKLU1096401

PATIENT
  Sex: Female
  Weight: 12 kg

DRUGS (2)
  1. SABRIL [Suspect]
     Active Substance: VIGABATRIN
     Indication: INFANTILE SPASMS
     Dates: start: 20131101
  2. SABRIL [Suspect]
     Active Substance: VIGABATRIN
     Dates: start: 20131101

REACTIONS (1)
  - Drug dose omission [Unknown]
